FAERS Safety Report 16682633 (Version 1)
Quarter: 2019Q3

REPORT INFORMATION
  Report Type: Spontaneous
  Country: US (occurrence: US)
  Receive Date: 20190808
  Receipt Date: 20190808
  Transmission Date: 20191004
  Serious: No
  Sender: FDA-Public Use
  Company Number: US-HORIZON-DUE-0461-2019

PATIENT
  Age: 36 Year
  Sex: Female

DRUGS (1)
  1. DUEXIS [Suspect]
     Active Substance: FAMOTIDINE\IBUPROFEN
     Indication: POST-TRAUMATIC PAIN
     Dosage: 1 TAB TID, PATIENT MAY NOT ALWAYS TAKE ALL 3 DEPENDING ON HOW SHE WAS FEELING
     Dates: start: 201812, end: 20190729

REACTIONS (5)
  - Therapy cessation [Unknown]
  - Road traffic accident [Unknown]
  - Product supply issue [Unknown]
  - Off label use [Unknown]
  - Intentional product use issue [Unknown]

NARRATIVE: CASE EVENT DATE: 201812
